FAERS Safety Report 9422170 (Version 2)
Quarter: 2013Q3

REPORT INFORMATION
  Report Type: Spontaneous
  Country: US (occurrence: US)
  Receive Date: 20130726
  Receipt Date: 20130816
  Transmission Date: 20140515
  Serious: Yes (Other)
  Sender: FDA-Public Use
  Company Number: US-009507513-1307USA012643

PATIENT
  Age: 52 Year
  Sex: Female
  Weight: 46.71 kg

DRUGS (7)
  1. COPPERTONE WATER BABIES LOTION SPF-50 [Suspect]
     Indication: PRODUCT USED FOR UNKNOWN INDICATION
     Dosage: UNK
     Route: 061
     Dates: start: 2003, end: 20130716
  2. COPPERTONE WATER BABIES LOTION SPF-50 [Suspect]
     Indication: PROPHYLAXIS
  3. BONIVA [Concomitant]
     Indication: OSTEOPENIA
     Route: 048
  4. CALCIUM (UNSPECIFIED) [Concomitant]
     Indication: OSTEOPENIA
     Route: 048
  5. SINGULAIR [Concomitant]
     Indication: RHINITIS
     Route: 048
  6. FLONASE [Concomitant]
     Indication: RHINITIS
  7. ALLERGENIC EXTRACT [Concomitant]
     Indication: RHINITIS
     Route: 030

REACTIONS (3)
  - Skin cancer [Unknown]
  - Urticaria [Unknown]
  - Pruritus [Unknown]
